FAERS Safety Report 4932999-9 (Version None)
Quarter: 2006Q1

REPORT INFORMATION
  Report Type: 
  Country: None (occurrence: None)
  Receive Date: 20060301
  Receipt Date: 20060214
  Transmission Date: 20060701
  Serious: Yes (Disabling)
  Sender: FDA-Public Use
  Company Number: 1859

PATIENT
  Age: 63 Year
  Sex: Female
  Weight: 51.9 kg

DRUGS (15)
  1. ONTAK [Suspect]
     Indication: B-CELL LYMPHOMA
     Dosage: 18 UG/KG/D QD IV
     Route: 042
     Dates: start: 20041101, end: 20050531
  2. ONTAK [Suspect]
     Indication: B-CELL LYMPHOMA
     Dosage: 9 UG/KG/D QD IV
     Route: 042
     Dates: start: 20041101, end: 20050531
  3. ACETAMINOPHEN [Concomitant]
  4. DEXAMETHASONE [Concomitant]
  5. DIPHENHYDRAMINE [Concomitant]
  6. FERROUS SULFATE TAB [Concomitant]
  7. FUROSEMIDE [Concomitant]
  8. INTRAVENOUS SALINE [Concomitant]
  9. LORAZEPAM [Concomitant]
  10. POTASSIUM [Concomitant]
  11. PROCHLORPERAZINE [Concomitant]
  12. PROPOXYPHENE HYDROCHLORIDE CAP [Concomitant]
  13. RITUXIMAB [Concomitant]
  14. SENNA [Concomitant]
  15. UNSPECIFIED VITAMINS [Concomitant]

REACTIONS (14)
  - AUTOIMMUNE DISORDER [None]
  - CATARACT NUCLEAR [None]
  - COLOUR BLINDNESS [None]
  - CORNEAL DISORDER [None]
  - DISEASE RECURRENCE [None]
  - DRUG TOXICITY [None]
  - LYMPHOMA [None]
  - MACULAR DEGENERATION [None]
  - MACULOPATHY [None]
  - OCULAR TOXICITY [None]
  - PHOTOSENSITIVITY REACTION [None]
  - RETINAL DEGENERATION [None]
  - RETINITIS [None]
  - RETINOPATHY HYPERTENSIVE [None]
